FAERS Safety Report 20317917 (Version 1)
Quarter: 2022Q1

REPORT INFORMATION
  Report Type: Spontaneous
  Country: US (occurrence: None)
  Receive Date: 20220110
  Receipt Date: 20220110
  Transmission Date: 20220423
  Serious: Yes (Death)
  Sender: FDA-Public Use
  Company Number: None

PATIENT
  Age: 63 Year
  Sex: Male

DRUGS (1)
  1. OPDIVO [Suspect]
     Active Substance: NIVOLUMAB
     Dosage: OTHER FREQUENCY : OTHER;?
     Route: 042
     Dates: start: 20210922, end: 20220106

REACTIONS (1)
  - Death [None]

NARRATIVE: CASE EVENT DATE: 20220110
